FAERS Safety Report 11578735 (Version 1)
Quarter: 2015Q3

REPORT INFORMATION
  Report Type: Spontaneous
  Country: US (occurrence: US)
  Receive Date: 20150930
  Receipt Date: 20150930
  Transmission Date: 20151125
  Serious: No
  Sender: FDA-Public Use
  Company Number: US-BAUSCH-BL-2015-019057

PATIENT
  Sex: Male

DRUGS (1)
  1. FENOGLIDE [Suspect]
     Active Substance: FENOFIBRATE
     Indication: BLOOD TRIGLYCERIDES INCREASED
     Route: 048
     Dates: start: 2015

REACTIONS (5)
  - Feeling hot [Not Recovered/Not Resolved]
  - Burning sensation [Not Recovered/Not Resolved]
  - Insomnia [Unknown]
  - Rash generalised [Unknown]
  - Flatulence [Unknown]

NARRATIVE: CASE EVENT DATE: 2015
